FAERS Safety Report 11018031 (Version 2)
Quarter: 2015Q2

REPORT INFORMATION
  Report Type: Spontaneous
  Country: US (occurrence: US)
  Receive Date: 20150412
  Receipt Date: 20150524
  Transmission Date: 20150821
  Serious: Yes (Other)
  Sender: FDA-Public Use
  Company Number: US-JNJFOC-20130905594

PATIENT
  Sex: Female

DRUGS (6)
  1. METHOTREXATE [Suspect]
     Active Substance: METHOTREXATE
     Indication: BREAST CANCER
     Dosage: ON DAY 1
     Route: 042
  2. 5-FLUOROURACIL [Suspect]
     Active Substance: FLUOROURACIL
     Indication: BREAST CANCER
     Dosage: OVER 15-30 MINUTES ON DAYS 1 AND 4
     Route: 042
  3. CYCLOPHOSPHAMIDE. [Suspect]
     Active Substance: CYCLOPHOSPHAMIDE
     Indication: BREAST CANCER
     Dosage: OVER 15-30 MINUTES ON DAY 1
     Route: 042
  4. CALCIUM LEUCOVORIN [Suspect]
     Active Substance: LEUCOVORIN CALCIUM
     Indication: BREAST CANCER
     Dosage: FOR 6 DOSES STARTING 24 HOURSAFTER COMPLETION OF METHOTREXATE AND VINBLASTINE
     Route: 048
  5. VINBLASTINE [Suspect]
     Active Substance: VINBLASTINE
     Indication: BREAST CANCER
     Dosage: BY CONTINUOUS INFUSION OVER 24 HOURS DAILY ON DAYS 1-5
     Route: 042
  6. DOXORUBICIN [Suspect]
     Active Substance: DOXORUBICIN
     Indication: BREAST CANCER
     Dosage: CONTINUOUS INFUSION OVER 72 HOURS
     Route: 042

REACTIONS (1)
  - Diarrhoea [Unknown]
